FAERS Safety Report 10082680 (Version 2)
Quarter: 2014Q3

REPORT INFORMATION
  Report Type: Spontaneous
  Country: GB (occurrence: GB)
  Receive Date: 20140416
  Receipt Date: 20140718
  Transmission Date: 20150326
  Serious: Yes (Death)
  Sender: FDA-Public Use
  Company Number: PHHY2014GB042599

PATIENT
  Age: 3 Decade
  Sex: Female

DRUGS (2)
  1. ATROPISOL [Concomitant]
  2. GABAPENTIN. [Suspect]
     Active Substance: GABAPENTIN

REACTIONS (2)
  - Overdose [Fatal]
  - Drug abuse [Fatal]
